FAERS Safety Report 15110392 (Version 4)
Quarter: 2022Q3

REPORT INFORMATION
  Report Type: Spontaneous
  Country: DE (occurrence: DE)
  Receive Date: 20180705
  Receipt Date: 20220812
  Transmission Date: 20221026
  Serious: Yes (Hospitalization)
  Sender: FDA-Public Use
  Company Number: PHHY1998DE002150

PATIENT
  Age: 82 Year
  Sex: Female

DRUGS (17)
  1. SULFAMETHOXAZOLE\TRIMETHOPRIM [Suspect]
     Active Substance: SULFAMETHOXAZOLE\TRIMETHOPRIM
     Indication: Pneumonia
     Dosage: 1 DF, UNK
     Route: 048
     Dates: start: 19941020, end: 19941021
  2. SULFAMETHOXAZOLE\TRIMETHOPRIM [Suspect]
     Active Substance: SULFAMETHOXAZOLE\TRIMETHOPRIM
     Dosage: 1 DF, UNK
     Route: 048
     Dates: start: 19941021
  3. SULFAMETHOXAZOLE\TRIMETHOPRIM [Suspect]
     Active Substance: SULFAMETHOXAZOLE\TRIMETHOPRIM
     Indication: Pneumonia
     Dosage: 1 DF, UNK
     Route: 048
     Dates: start: 19941020, end: 19941021
  4. ASPIRIN [Suspect]
     Active Substance: ASPIRIN
     Indication: Cardiac failure
     Dosage: 100 MG, QD
     Route: 048
     Dates: end: 19941021
  5. POTASSIUM BICARBONATE\POTASSIUM CITRATE [Suspect]
     Active Substance: POTASSIUM BICARBONATE\POTASSIUM CITRATE
     Indication: Cardiac failure
     Dosage: UNK
     Route: 048
     Dates: start: 19941017, end: 19941021
  6. POTASSIUM BICARBONATE\POTASSIUM CITRATE [Suspect]
     Active Substance: POTASSIUM BICARBONATE\POTASSIUM CITRATE
     Dosage: UNK
     Route: 048
  7. DULCOLAX NOS [Suspect]
     Active Substance: BISACODYL OR DOCUSATE SODIUM
     Indication: Constipation
     Dosage: 1 DF, QD
     Route: 054
     Dates: start: 19941019, end: 19941019
  8. LASIX [Suspect]
     Active Substance: FUROSEMIDE
     Indication: Fluid retention
     Dosage: UNK
     Route: 048
     Dates: start: 19941018, end: 19941021
  9. LASIX [Suspect]
     Active Substance: FUROSEMIDE
     Dosage: UNK
     Route: 048
     Dates: start: 19941021
  10. POTASSIUM CARBONATE [Suspect]
     Active Substance: POTASSIUM CARBONATE
     Indication: Cardiac failure
     Dosage: UNK
     Route: 048
     Dates: start: 19941017, end: 19941021
  11. POTASSIUM CARBONATE [Suspect]
     Active Substance: POTASSIUM CARBONATE
     Dosage: UNK
     Route: 048
  12. LACTULOSE [Suspect]
     Active Substance: LACTULOSE
     Indication: Constipation
     Dosage: 2 DF, QD
     Route: 048
     Dates: start: 19941020, end: 19941021
  13. LACTULOSE [Suspect]
     Active Substance: LACTULOSE
     Dosage: 2 DF, QD
     Route: 048
     Dates: start: 19941021
  14. HEPARIN SODIUM [Suspect]
     Active Substance: HEPARIN SODIUM
     Indication: Thrombosis prophylaxis
     Dosage: 15000 (DAILY DOSE)
     Route: 058
     Dates: start: 19941017, end: 19941021
  15. HEPARIN SODIUM [Suspect]
     Active Substance: HEPARIN SODIUM
     Dosage: 15000 OT, QD
     Route: 058
     Dates: start: 19941021
  16. ISMO [Suspect]
     Active Substance: ISOSORBIDE MONONITRATE
     Indication: Cardiac failure
     Dosage: 40 MG, QD
     Route: 048
     Dates: start: 19941017, end: 19941021
  17. ISMO [Suspect]
     Active Substance: ISOSORBIDE MONONITRATE
     Dosage: UNK
     Route: 065

REACTIONS (3)
  - Stevens-Johnson syndrome [Recovering/Resolving]
  - Blood lactate dehydrogenase increased [Unknown]
  - Leukopenia [Unknown]

NARRATIVE: CASE EVENT DATE: 19941021
